FAERS Safety Report 15559230 (Version 1)
Quarter: 2018Q4

REPORT INFORMATION
  Report Type: Report from Study
  Country: US (occurrence: US)
  Receive Date: 20181029
  Receipt Date: 20181029
  Transmission Date: 20190205
  Serious: Yes (Other)
  Sender: FDA-Public Use
  Company Number: US-AUROBINDO-AUR-APL-2018-051702

PATIENT
  Age: 53 Year
  Sex: Female

DRUGS (12)
  1. PLAQUENIL                          /00072602/ [Suspect]
     Active Substance: HYDROXYCHLOROQUINE DIPHOSPHATE
     Indication: SJOGREN^S SYNDROME
  2. PREDNISONE. [Suspect]
     Active Substance: PREDNISONE
     Indication: BLOOD IMMUNOGLOBULIN M
  3. SULFASALAZINE. [Suspect]
     Active Substance: SULFASALAZINE
     Indication: SJOGREN^S SYNDROME
  4. METHOTREXATE. [Suspect]
     Active Substance: METHOTREXATE
     Indication: SYSTEMIC LUPUS ERYTHEMATOSUS
     Dosage: UNK
     Route: 065
  5. METHOTREXATE. [Suspect]
     Active Substance: METHOTREXATE
     Indication: BLOOD IMMUNOGLOBULIN M
  6. PLAQUENIL                          /00072602/ [Suspect]
     Active Substance: HYDROXYCHLOROQUINE DIPHOSPHATE
     Indication: SYSTEMIC LUPUS ERYTHEMATOSUS
  7. PREDNISONE. [Suspect]
     Active Substance: PREDNISONE
     Indication: SYSTEMIC LUPUS ERYTHEMATOSUS
     Dosage: UNK
     Route: 048
  8. PREDNISONE. [Suspect]
     Active Substance: PREDNISONE
     Indication: SJOGREN^S SYNDROME
  9. SULFASALAZINE. [Suspect]
     Active Substance: SULFASALAZINE
     Indication: SYSTEMIC LUPUS ERYTHEMATOSUS
     Dosage: UNK
     Route: 065
  10. PLAQUENIL                          /00072602/ [Suspect]
     Active Substance: HYDROXYCHLOROQUINE DIPHOSPHATE
     Indication: BLOOD IMMUNOGLOBULIN M
  11. SULFASALAZINE. [Suspect]
     Active Substance: SULFASALAZINE
     Indication: BLOOD IMMUNOGLOBULIN M
  12. METHOTREXATE. [Suspect]
     Active Substance: METHOTREXATE
     Indication: SJOGREN^S SYNDROME

REACTIONS (8)
  - Varicella zoster virus infection [Unknown]
  - Staphylococcal infection [Unknown]
  - Ulcer [Unknown]
  - Granulomatous dermatitis [Recovered/Resolved]
  - Post herpetic neuralgia [Not Recovered/Not Resolved]
  - Skin plaque [Unknown]
  - Trigeminal nerve disorder [Unknown]
  - Keratitis fungal [Unknown]
